FAERS Safety Report 16686445 (Version 3)
Quarter: 2020Q1

REPORT INFORMATION
  Report Type: Spontaneous
  Country: JP (occurrence: JP)
  Receive Date: 20190809
  Receipt Date: 20200120
  Transmission Date: 20200409
  Serious: Yes (Life-Threatening, Hospitalization, Disabling, Other)
  Sender: FDA-Public Use
  Company Number: JP-ROCHE-2371412

PATIENT
  Age: 63 Year
  Sex: Female
  Weight: 35 kg

DRUGS (4)
  1. ACTEMRA [Suspect]
     Active Substance: TOCILIZUMAB
     Indication: RHEUMATOID ARTHRITIS
     Route: 041
     Dates: start: 2018, end: 20190116
  2. ACETAMINOPHEN. [Concomitant]
     Active Substance: ACETAMINOPHEN
  3. CARERAM [Concomitant]
     Active Substance: IGURATIMOD
  4. CARERAM [Concomitant]
     Active Substance: IGURATIMOD

REACTIONS (12)
  - Urinary tract infection [Unknown]
  - Pneumonia [Unknown]
  - Decubitus ulcer [Unknown]
  - Bacteraemia [Unknown]
  - Localised infection [Unknown]
  - Aphasia [Unknown]
  - Hemiplegia [Unknown]
  - Thrombotic cerebral infarction [Not Recovered/Not Resolved]
  - Infective spondylitis [Recovered/Resolved with Sequelae]
  - Muscle abscess [Recovered/Resolved with Sequelae]
  - Endocarditis [Recovered/Resolved with Sequelae]
  - Diarrhoea [Unknown]

NARRATIVE: CASE EVENT DATE: 201901
